FAERS Safety Report 16057408 (Version 5)
Quarter: 2019Q3

REPORT INFORMATION
  Report Type: Spontaneous
  Country: US (occurrence: US)
  Receive Date: 20190311
  Receipt Date: 20190828
  Transmission Date: 20191004
  Serious: No
  Sender: FDA-Public Use
  Company Number: US-PFIZER INC-2019002098

PATIENT
  Age: 32 Year
  Sex: Female
  Weight: 76.19 kg

DRUGS (3)
  1. LYRICA [Suspect]
     Active Substance: PREGABALIN
     Indication: FIBROMYALGIA
     Dosage: 300 MG, UNK
  2. LYRICA [Suspect]
     Active Substance: PREGABALIN
     Dosage: 300 MG, SINGLE (TAKE 1 300MG)
  3. LYRICA [Suspect]
     Active Substance: PREGABALIN
     Dosage: 600 MG, DAILY

REACTIONS (8)
  - Pyrexia [Unknown]
  - Off label use [Unknown]
  - Chills [Unknown]
  - Withdrawal syndrome [Unknown]
  - Malaise [Unknown]
  - Intentional product use issue [Unknown]
  - Nerve injury [Unknown]
  - Hot flush [Unknown]
